FAERS Safety Report 23526333 (Version 1)
Quarter: 2024Q1

REPORT INFORMATION
  Report Type: Spontaneous
  Country: US (occurrence: None)
  Receive Date: 20240214
  Receipt Date: 20240214
  Transmission Date: 20240409
  Serious: Yes (Other)
  Sender: FDA-Public Use
  Company Number: None

PATIENT
  Sex: 0

DRUGS (3)
  1. VOLTAREN ARTHRITIS PAIN [Suspect]
     Active Substance: DICLOFENAC SODIUM
     Indication: Arthritis
     Dosage: 1 DOSING CARD EVERY 6 HOURS TOPICAL
     Route: 061
     Dates: start: 20240202, end: 20240203
  2. VOLTAREN ARTHRITIS PAIN [Suspect]
     Active Substance: DICLOFENAC SODIUM
     Indication: Pain
  3. TELMISARTAN [Suspect]
     Active Substance: TELMISARTAN

REACTIONS (4)
  - Pain [None]
  - Pain in extremity [None]
  - Tremor [None]
  - Drug interaction [None]

NARRATIVE: CASE EVENT DATE: 20240202
